FAERS Safety Report 19518671 (Version 1)
Quarter: 2021Q3

REPORT INFORMATION
  Report Type: Spontaneous
  Country: US (occurrence: US)
  Receive Date: 20210710
  Receipt Date: 20210710
  Transmission Date: 20211014
  Serious: No
  Sender: FDA-Public Use
  Company Number: None

PATIENT
  Age: 70 Year
  Sex: Female
  Weight: 59.4 kg

DRUGS (1)
  1. PREDNISONE. [Suspect]
     Active Substance: PREDNISONE
     Indication: MUSCULOSKELETAL DISCOMFORT
     Route: 048
     Dates: start: 20210326, end: 20210331

REACTIONS (4)
  - Lip exfoliation [None]
  - Oral discomfort [None]
  - Cheilitis [None]
  - Chapped lips [None]

NARRATIVE: CASE EVENT DATE: 20210419
